FAERS Safety Report 7948195-7 (Version None)
Quarter: 2011Q4

REPORT INFORMATION
  Report Type: 
  Country: None (occurrence: None)
  Receive Date: 20111130
  Receipt Date: 20111116
  Transmission Date: 20120403
  Serious: Yes (Hospitalization)
  Sender: FDA-Public Use
  Company Number: IN-RANBAXY-2010US-31131

PATIENT

DRUGS (4)
  1. LAMIVUDINE(PEPFAR) [Suspect]
     Indication: ANTIRETROVIRAL THERAPY
     Route: 064
  2. ZIDOVUDINE [Suspect]
     Indication: ANTIRETROVIRAL THERAPY
     Dosage: UNK, UNK
     Route: 064
  3. NEVIRAPINE [Suspect]
     Indication: ANTIRETROVIRAL THERAPY
     Route: 064
  4. ZIDOVUDINE [Suspect]
     Indication: PRODUCT USED FOR UNKNOWN INDICATION
     Dosage: 2 MG/KG/DOSE SYRUP EVERY 6 HOURS FOR 6 WEEKS
     Route: 065

REACTIONS (7)
  - HEPATOMEGALY [None]
  - RENAL FAILURE ACUTE [None]
  - PYREXIA [None]
  - LACTIC ACIDOSIS [None]
  - DYSPNOEA [None]
  - FOETAL EXPOSURE DURING PREGNANCY [None]
  - COUGH [None]
